FAERS Safety Report 6187358-0 (Version None)
Quarter: 2009Q2

REPORT INFORMATION
  Report Type: 
  Country: None (occurrence: None)
  Receive Date: 20090512
  Receipt Date: 20090504
  Transmission Date: 20091009
  Serious: Yes (Other)
  Sender: FDA-Public Use
  Company Number: A0776909A

PATIENT
  Age: 57 Year
  Sex: Male

DRUGS (3)
  1. VERAMYST [Suspect]
     Indication: DRUG USE FOR UNKNOWN INDICATION
     Route: 045
     Dates: start: 20080101
  2. ATENOLOL [Concomitant]
     Route: 048
  3. ADDERALL 10 [Concomitant]
     Route: 048

REACTIONS (2)
  - MYODESOPSIA [None]
  - VITREOUS DETACHMENT [None]
